FAERS Safety Report 20547218 (Version 3)
Quarter: 2022Q4

REPORT INFORMATION
  Report Type: Other
  Country: DE (occurrence: None)
  Receive Date: 20220303
  Receipt Date: 20221025
  Transmission Date: 20230113
  Serious: No
  Sender: FDA-Public Use
  Company Number: DE-ROCHE-3039982

PATIENT
  Age: 36 Year
  Sex: Female
  Weight: 68 kg

DRUGS (13)
  1. OCRELIZUMAB [Suspect]
     Active Substance: OCRELIZUMAB
     Indication: Relapsing multiple sclerosis
     Route: 042
     Dates: start: 20180509, end: 20180524
  2. OCRELIZUMAB [Suspect]
     Active Substance: OCRELIZUMAB
     Route: 042
     Dates: start: 20181122
  3. MEDROXYPROGESTERONE [Concomitant]
     Active Substance: MEDROXYPROGESTERONE
     Indication: Contraception
     Route: 058
     Dates: start: 202009, end: 202012
  4. DESOGESTREL [Concomitant]
     Active Substance: DESOGESTREL
     Indication: Contraception
     Route: 048
     Dates: start: 20201210
  5. COMIRNATY [Concomitant]
     Active Substance: TOZINAMERAN
     Indication: COVID-19 immunisation
     Route: 030
     Dates: start: 20210420, end: 20210420
  6. COMIRNATY [Concomitant]
     Active Substance: TOZINAMERAN
     Route: 030
     Dates: start: 20210601, end: 20210601
  7. COMIRNATY [Concomitant]
     Active Substance: TOZINAMERAN
     Route: 030
     Dates: start: 20211127, end: 20211127
  8. SOLIFENACIN [Concomitant]
     Active Substance: SOLIFENACIN
     Indication: Neurogenic bladder
     Dosage: DEFINITION OF THE INTERVAL: AS REQUIRED
     Route: 048
     Dates: start: 20200908
  9. MINOXIDIL [Concomitant]
     Active Substance: MINOXIDIL
     Route: 061
     Dates: start: 201909
  10. ENCEPUR [Concomitant]
     Active Substance: TICK-BORNE ENCEPHALITIS VACCINE
     Indication: Immunisation
     Route: 030
     Dates: start: 20200228, end: 20200228
  11. ENCEPUR [Concomitant]
     Active Substance: TICK-BORNE ENCEPHALITIS VACCINE
     Route: 030
     Dates: start: 20200414, end: 20200414
  12. METHYLPREDNISOLONE [Concomitant]
     Active Substance: METHYLPREDNISOLONE
     Indication: Premedication
     Route: 042
     Dates: start: 20180509, end: 20180509
  13. CLEMASTINE FUMARATE [Concomitant]
     Active Substance: CLEMASTINE FUMARATE
     Indication: Premedication
     Route: 048
     Dates: start: 20180509, end: 20180509

REACTIONS (2)
  - COVID-19 [Recovered/Resolved]
  - Hand-foot-and-mouth disease [Recovered/Resolved]

NARRATIVE: CASE EVENT DATE: 20220104
